FAERS Safety Report 18210971 (Version 1)
Quarter: 2020Q3

REPORT INFORMATION
  Report Type: Spontaneous
  Country: US (occurrence: US)
  Receive Date: 20200830
  Receipt Date: 20200830
  Transmission Date: 20201103
  Serious: No
  Sender: FDA-Public Use
  Company Number: US-ENDO PHARMACEUTICALS INC-2020-002449

PATIENT
  Sex: Female
  Weight: 70.31 kg

DRUGS (1)
  1. PREDNISONE. [Suspect]
     Active Substance: PREDNISONE
     Indication: RHEUMATOID FACTOR INCREASED
     Dosage: 1.5 TABLETS DAILY
     Route: 065
     Dates: start: 2020

REACTIONS (1)
  - Weight increased [Unknown]

NARRATIVE: CASE EVENT DATE: 2020
